FAERS Safety Report 17117182 (Version 1)
Quarter: 2019Q4

REPORT INFORMATION
  Report Type: Other
  Country: SK (occurrence: SK)
  Receive Date: 20191205
  Receipt Date: 20191205
  Transmission Date: 20200122
  Serious: Yes (Other)
  Sender: FDA-Public Use
  Company Number: SK-STRIDES ARCOLAB LIMITED-2019SP012409

PATIENT
  Age: 10 Year

DRUGS (1)
  1. IBUPROFEN. [Suspect]
     Active Substance: IBUPROFEN
     Indication: PRODUCT USED FOR UNKNOWN INDICATION
     Dosage: UNK, TABLETS
     Route: 065

REACTIONS (2)
  - Suicide attempt [Unknown]
  - Drug abuse [Unknown]
